FAERS Safety Report 22054274 (Version 1)
Quarter: 2023Q1

REPORT INFORMATION
  Report Type: Spontaneous
  Country: JP (occurrence: JP)
  Receive Date: 20230302
  Receipt Date: 20230302
  Transmission Date: 20230417
  Serious: Yes (Hospitalization)
  Sender: FDA-Public Use
  Company Number: JP-BRISTOL-MYERS SQUIBB COMPANY-2023-011002

PATIENT
  Age: 55 Year
  Sex: Male

DRUGS (2)
  1. SOTYKTU [Suspect]
     Active Substance: DEUCRAVACITINIB
     Indication: Erythrodermic psoriasis
     Route: 048
     Dates: start: 20230110, end: 20230121
  2. OXAROL [Concomitant]
     Active Substance: MAXACALCITOL
     Indication: Product used for unknown indication
     Dosage: SKIN APPLICATION
     Route: 050

REACTIONS (4)
  - Condition aggravated [Recovered/Resolved]
  - Arthritis [Recovering/Resolving]
  - Staphylococcal infection [Recovered/Resolved]
  - Erythrodermic psoriasis [Recovered/Resolved]

NARRATIVE: CASE EVENT DATE: 20230121
